FAERS Safety Report 7237420-6 (Version None)
Quarter: 2011Q1

REPORT INFORMATION
  Report Type: 
  Country: None (occurrence: None)
  Receive Date: 20110121
  Receipt Date: 20110114
  Transmission Date: 20110831
  Serious: Yes (Hospitalization)
  Sender: FDA-Public Use
  Company Number: US-SANOFI-AVENTIS-2010SA073824

PATIENT
  Age: 52 Year
  Sex: Male
  Weight: 87.99 kg

DRUGS (11)
  1. NEULASTA [Concomitant]
     Dates: start: 20101105
  2. ZOCOR [Concomitant]
  3. DEXAMETHASONE [Concomitant]
     Route: 051
     Dates: start: 20101104, end: 20101104
  4. VENLAFAXINE [Concomitant]
  5. PREDNISONE [Concomitant]
  6. PALONOSETRON [Concomitant]
     Indication: ANTIEMETIC SUPPORTIVE CARE
     Route: 051
     Dates: start: 20101104, end: 20101104
  7. DIPHENHYDRAMINE [Concomitant]
     Route: 051
     Dates: start: 20101104, end: 20101104
  8. FAMOTIDINE [Concomitant]
     Route: 051
     Dates: start: 20101104, end: 20101104
  9. OMEPRAZOLE [Concomitant]
  10. JEVTANA KIT [Suspect]
     Indication: PROSTATE CANCER
     Route: 051
     Dates: start: 20101104, end: 20101104
  11. PROVENGE [Suspect]
     Route: 065
     Dates: start: 20100930, end: 20100930

REACTIONS (4)
  - DYSPNOEA [None]
  - ANAEMIA [None]
  - LUNG INFILTRATION [None]
  - THROMBOCYTOPENIA [None]
